FAERS Safety Report 13133014 (Version 1)
Quarter: 2017Q1

REPORT INFORMATION
  Report Type: Spontaneous
  Country: US (occurrence: US)
  Receive Date: 20170118
  Receipt Date: 20170118
  Transmission Date: 20170428
  Serious: No
  Sender: FDA-Public Use
  Company Number: None

PATIENT
  Age: 61 Year
  Sex: Female

DRUGS (1)
  1. HUMIRA [Suspect]
     Active Substance: ADALIMUMAB
     Indication: RHEUMATOID ARTHRITIS
     Route: 058
     Dates: start: 20161229

REACTIONS (4)
  - Pain [None]
  - Discomfort [None]
  - Activities of daily living impaired [None]
  - Injection site discolouration [None]

NARRATIVE: CASE EVENT DATE: 20170116
